FAERS Safety Report 7211162-5 (Version None)
Quarter: 2011Q1

REPORT INFORMATION
  Report Type: 
  Country: None (occurrence: None)
  Receive Date: 20110105
  Receipt Date: 20101221
  Transmission Date: 20110831
  Serious: Yes (Life-Threatening, Hospitalization)
  Sender: FDA-Public Use
  Company Number: US-CELGENEUS-163-C5013-10071690

PATIENT
  Sex: Male
  Weight: 113.05 kg

DRUGS (32)
  1. LOTRIMIN [Concomitant]
     Indication: RASH
     Route: 061
     Dates: start: 20100526, end: 20100528
  2. ATENOLOL [Concomitant]
     Indication: HYPERTENSION
     Route: 048
     Dates: start: 19900101
  3. DEMADEX [Concomitant]
     Indication: HYPERTENSION
     Route: 065
     Dates: start: 19900101
  4. FLOMAX [Concomitant]
     Route: 048
     Dates: start: 20020201
  5. WARFARIN [Concomitant]
     Route: 065
  6. IMIPENEM [Concomitant]
     Route: 065
     Dates: start: 20100701
  7. DOCETAXEL [Suspect]
     Indication: PROSTATE CANCER
     Route: 065
     Dates: start: 20100518
  8. PREDNISONE [Suspect]
     Indication: PROSTATE CANCER
     Route: 065
     Dates: start: 20100518
  9. WARFARIN [Concomitant]
     Indication: THROMBOSIS PROPHYLAXIS
     Route: 048
     Dates: start: 20061001
  10. LUPRON [Concomitant]
     Indication: HORMONE SUPPRESSION THERAPY
     Route: 030
     Dates: start: 20090201
  11. CIPRO [Concomitant]
     Indication: PROTEUS INFECTION
  12. PRIMAXIN [Concomitant]
     Indication: PSEUDOMONAS INFECTION
     Route: 065
     Dates: start: 20100101
  13. LANTUS [Concomitant]
     Dosage: 50 UNITS
     Route: 058
     Dates: start: 20080801
  14. PRIMAXIN [Concomitant]
     Indication: PROTEUS INFECTION
  15. NEULASTA [Concomitant]
     Route: 065
  16. CC-5013\PLACEBO [Suspect]
     Indication: PROSTATE CANCER
     Route: 048
     Dates: start: 20100518
  17. PREDNISONE [Suspect]
     Route: 065
     Dates: start: 20100707, end: 20100713
  18. VANCOMYCIN [Concomitant]
     Indication: PROTEUS INFECTION
  19. CIPRO [Concomitant]
     Indication: PSEUDOMONAS INFECTION
     Route: 065
     Dates: start: 20100101
  20. PRAVASTATIN [Concomitant]
     Route: 065
  21. CC-5013\PLACEBO [Suspect]
     Route: 048
     Dates: start: 20100707, end: 20100713
  22. AMLODIPINE [Concomitant]
     Indication: HYPERTENSION
     Route: 048
     Dates: start: 19900101
  23. ASPIRIN [Concomitant]
     Indication: THROMBOSIS PROPHYLAXIS
     Route: 048
     Dates: start: 19900101
  24. IMDUR [Concomitant]
     Route: 048
  25. MYCOSTATIN [Concomitant]
     Indication: RASH
     Route: 061
     Dates: start: 20100528
  26. LORTAB [Concomitant]
     Dosage: 5/500
     Route: 065
  27. DIFLUCAN [Concomitant]
     Indication: RASH
     Route: 048
     Dates: start: 20100528
  28. DEMADEX [Concomitant]
  29. VANCOMYCIN [Concomitant]
     Indication: PSEUDOMONAS INFECTION
     Route: 065
     Dates: start: 20100101
  30. DOCETAXEL [Suspect]
     Route: 065
     Dates: start: 20100707, end: 20100713
  31. HUMALOG [Concomitant]
     Dosage: SLIDING SCALE
     Route: 058
     Dates: start: 20080801
  32. IMDUR [Concomitant]
     Indication: HYPERTENSION
     Route: 048
     Dates: start: 19900101

REACTIONS (3)
  - PERITONITIS [None]
  - FEBRILE NEUTROPENIA [None]
  - GASTROINTESTINAL PERFORATION [None]
